FAERS Safety Report 9975774 (Version 2)
Quarter: 2014Q1

REPORT INFORMATION
  Report Type: Spontaneous
  Country: US (occurrence: US)
  Receive Date: 20140306
  Receipt Date: 20140321
  Transmission Date: 20141002
  Serious: Yes (Death)
  Sender: FDA-Public Use
  Company Number: US-B.I. PHARMACEUTICALS,INC./RIDGEFIELD-2014-BI-09523BP

PATIENT
  Age: 52 Year
  Sex: Male

DRUGS (3)
  1. SPIRIVA [Suspect]
     Indication: DYSPNOEA
     Dosage: 18 MCG
     Route: 055
     Dates: start: 2012
  2. UNSPECIFIED DIABETIC MEDICATIONS [Concomitant]
     Route: 065
  3. UNSPECIFIED HEART MEDICATIONS [Concomitant]
     Route: 065

REACTIONS (1)
  - Myocardial infarction [Fatal]
